FAERS Safety Report 16573486 (Version 1)
Quarter: 2019Q3

REPORT INFORMATION
  Report Type: Spontaneous
  Country: DE (occurrence: DE)
  Receive Date: 20190715
  Receipt Date: 20190715
  Transmission Date: 20191004
  Serious: Yes (Hospitalization)
  Sender: FDA-Public Use
  Company Number: DE-TEVA-2019-DE-1075693

PATIENT
  Age: 81 Year
  Sex: Female

DRUGS (1)
  1. TAMOXIFEN [Suspect]
     Active Substance: TAMOXIFEN
     Dosage: NK MG, NK

REACTIONS (4)
  - Pyrexia [Unknown]
  - Gamma-glutamyltransferase increased [Unknown]
  - Electrocardiogram ST segment depression [Unknown]
  - Chest discomfort [Unknown]
